FAERS Safety Report 10098788 (Version 1)
Quarter: 2014Q2

REPORT INFORMATION
  Report Type: Spontaneous
  Country: IN (occurrence: IN)
  Receive Date: 20140423
  Receipt Date: 20140423
  Transmission Date: 20141212
  Serious: Yes (Other)
  Sender: FDA-Public Use
  Company Number: IN-ROXANE LABORATORIES, INC.-2014-RO-00635RO

PATIENT
  Age: 22 Year
  Sex: Male

DRUGS (1)
  1. QUETIAPINE FUMARATE [Suspect]
     Indication: DEPRESSION
     Dosage: 200 MG
     Route: 065

REACTIONS (2)
  - Dermatitis acneiform [Recovered/Resolved]
  - Pruritus [Recovered/Resolved]
